FAERS Safety Report 16161579 (Version 1)
Quarter: 2019Q2

REPORT INFORMATION
  Report Type: Spontaneous
  Country: ES (occurrence: ES)
  Receive Date: 20190405
  Receipt Date: 20190405
  Transmission Date: 20190711
  Serious: Yes (Hospitalization, Other)
  Sender: FDA-Public Use
  Company Number: ES-AUROBINDO-AUR-APL-2019-017676

PATIENT

DRUGS (7)
  1. MEROPENEM. [Suspect]
     Active Substance: MEROPENEM
     Indication: SYSTEMIC INFLAMMATORY RESPONSE SYNDROME
     Dosage: 1 GRAM, ONCE A DAY, 1G/24H
     Route: 042
     Dates: start: 20190119, end: 20190201
  2. FLUCONAZOLE. [Suspect]
     Active Substance: FLUCONAZOLE
     Indication: ORAL CANDIDIASIS
  3. FLUCONAZOLE. [Suspect]
     Active Substance: FLUCONAZOLE
     Indication: GENITAL CANDIDIASIS
     Dosage: 150 MILLIGRAM, ONCE A DAY, 150 MG/ 24H
     Route: 048
     Dates: start: 20190125, end: 20190129
  4. METRONIDAZOLE. [Suspect]
     Active Substance: METRONIDAZOLE
     Indication: GASTROENTERITIS
     Dosage: 500 MILLIGRAM, 3 TIMES A DAY, 500MG /8H
     Route: 048
     Dates: start: 20190123, end: 20190131
  5. ULTRA LEVURA [Concomitant]
     Active Substance: SACCHAROMYCES CEREVISIAE
     Indication: GASTROENTERITIS
     Dosage: 250 MILLIGRAM, ONCE A DAY, 250 MG/24H
     Route: 048
     Dates: start: 20190123
  6. DONEPEZIL. [Concomitant]
     Active Substance: DONEPEZIL
     Indication: DEMENTIA ALZHEIMER^S TYPE
     Dosage: 10 MILLIGRAM, ONCE A DAY, 10 MG /24H
     Route: 048
     Dates: end: 20190203
  7. VANCOMYCIN [Concomitant]
     Active Substance: VANCOMYCIN
     Indication: PRODUCT USED FOR UNKNOWN INDICATION
     Dosage: 500 MILLIGRAM, 500 MG POST HD EN DOSIS ?NICA
     Route: 042
     Dates: start: 20190125, end: 20190125

REACTIONS (1)
  - Drug reaction with eosinophilia and systemic symptoms [Recovered/Resolved with Sequelae]

NARRATIVE: CASE EVENT DATE: 20190204
